FAERS Safety Report 17251695 (Version 6)
Quarter: 2020Q2

REPORT INFORMATION
  Report Type: Spontaneous
  Country: US (occurrence: US)
  Receive Date: 20200109
  Receipt Date: 20200603
  Transmission Date: 20200713
  Serious: Yes (Other)
  Sender: FDA-Public Use
  Company Number: US-PFIZER INC-2016406584

PATIENT
  Age: 77 Year
  Sex: Female
  Weight: 64 kg

DRUGS (39)
  1. LYRICA [Suspect]
     Active Substance: PREGABALIN
     Indication: FIBROMYALGIA
     Dosage: 50 MG, ONCE DAILY (AT BEDTIME)
     Route: 048
     Dates: start: 20160505
  2. FIORICET [Concomitant]
     Active Substance: ACETAMINOPHEN\BUTALBITAL\CAFFEINE
     Indication: HEADACHE
     Dosage: 1 DF, AS NEEDED (EVERY 6 HOURS)
     Route: 048
  3. ARICEPT [Concomitant]
     Active Substance: DONEPEZIL HYDROCHLORIDE
     Dosage: 10 MG, ONCE DAILY
     Route: 048
     Dates: end: 20160819
  4. VITAMIN D [ERGOCALCIFEROL] [Concomitant]
     Active Substance: ERGOCALCIFEROL
     Dosage: 50000 IU, WEEKLY (EVERY SUNDAY)
     Route: 048
  5. VITAMIN B12 [Concomitant]
     Active Substance: CYANOCOBALAMIN
     Dosage: 100 UG, DAILY
     Route: 048
  6. ALPRAZOLAM. [Concomitant]
     Active Substance: ALPRAZOLAM
     Indication: SLEEP DISORDER
     Dosage: 0.5 MG, ONCE DAILY (EVERY NIGHT AT BEDTIME)
     Route: 048
  7. TIZANIDINE HCL [Concomitant]
     Active Substance: TIZANIDINE HYDROCHLORIDE
     Dosage: UNK, AS NEEDED
  8. DICLOFENAC [Concomitant]
     Active Substance: DICLOFENAC
     Dosage: UNK, DAILY
  9. ZETIA [Concomitant]
     Active Substance: EZETIMIBE
     Dosage: 10 MG, ONCE DAILY
     Route: 048
  10. PEPCID [Concomitant]
     Active Substance: FAMOTIDINE
     Dosage: 20 MG, ONCE DAILY (PM )
     Route: 048
  11. MINOCIN [Concomitant]
     Active Substance: MINOCYCLINE HYDROCHLORIDE
     Dosage: 100 MG, TWICE DAILY
     Route: 048
  12. IPRATROPIUM BROMIDE. [Concomitant]
     Active Substance: IPRATROPIUM BROMIDE
     Dosage: UNK, AS NEEDED (EVERY 4 TO 6  HOURS)
     Route: 048
  13. COLESTID [Concomitant]
     Active Substance: COLESTIPOL HYDROCHLORIDE
     Dosage: 1 G, TWICE DAILY
     Dates: end: 20190514
  14. LOSARTAN POTASSIUM. [Concomitant]
     Active Substance: LOSARTAN POTASSIUM
     Dosage: 50 MG, ONCE DAILY
     Route: 048
  15. PROTONIX [Concomitant]
     Active Substance: PANTOPRAZOLE SODIUM
     Dosage: 40 MG, ONCE DAILY (EVERY NIGHT AT BEDTIME)
     Route: 048
  16. PROTONIX [Concomitant]
     Active Substance: PANTOPRAZOLE SODIUM
     Dosage: 40 MG, ONCE DAILY (EVERY MORNING) ]
     Route: 048
  17. CILOSTAZOL. [Concomitant]
     Active Substance: CILOSTAZOL
     Dosage: 100 MG, TWICE DAILY
     Route: 048
  18. OLMESARTAN MEDOXOMIL. [Concomitant]
     Active Substance: OLMESARTAN MEDOXOMIL
     Dosage: 5 MG, FOUR TIMES DAILY
     Route: 048
  19. INDOMETHACIN [INDOMETACIN] [Concomitant]
     Active Substance: INDOMETHACIN
     Dosage: 75 MG, TWICE DAILY
     Route: 048
     Dates: end: 20190606
  20. PROAIR HFA [Concomitant]
     Active Substance: ALBUTEROL SULFATE
     Dosage: 2 PUFFS, AS NEEDED (EVERY DAY 4 TO 6 HOURS)
     Route: 055
  21. PREDNISONE. [Concomitant]
     Active Substance: PREDNISONE
     Dosage: 10 MG, ONCE DAILY
     Route: 048
  22. ALPHA LIPOIC ACID [Concomitant]
     Active Substance: .ALPHA.-LIPOIC ACID
     Dosage: 1 DF, ONCE DAILY (AT NOON)
     Route: 048
  23. NITROGLYCERIN. [Concomitant]
     Active Substance: NITROGLYCERIN
     Indication: CHEST PAIN
     Dosage: 0.4 MG, AS NEEDED (EVERY 5 MINUTES)
  24. MAGNESIUM [Concomitant]
     Active Substance: MAGNESIUM
     Dosage: 235 MG, ONCE DAILY (AT NOON)
     Route: 048
     Dates: end: 20190606
  25. AMIODARONE HCL [Concomitant]
     Active Substance: AMIODARONE HYDROCHLORIDE
     Dosage: 200 MG, ONCE DAILY (NOON)
     Route: 048
  26. IRON [Concomitant]
     Active Substance: IRON
     Dosage: UNK, TWICE WEEKLY
     Route: 048
  27. LOSARTAN POTASSIUM. [Concomitant]
     Active Substance: LOSARTAN POTASSIUM
     Dosage: 25 MG, ONCE DAILY
     Route: 048
  28. ELIQUIS [Concomitant]
     Active Substance: APIXABAN
     Dosage: 2.5 MG, TWICE DAILY
     Route: 048
  29. ASPIRIN [ACETYLSALICYLIC ACID] [Concomitant]
     Active Substance: ASPIRIN
     Dosage: 81 MG, ONCE DAILY
     Route: 048
     Dates: end: 20200201
  30. METOPROLOL SUCCINATE. [Concomitant]
     Active Substance: METOPROLOL SUCCINATE
     Dosage: 50 MG, TWICE DAILY
     Route: 048
     Dates: end: 20160822
  31. TRAMADOL HCL [Concomitant]
     Active Substance: TRAMADOL HYDROCHLORIDE
     Dosage: 50 MG, TWICE DAILY
     Route: 048
  32. MINOCYCLINE HCL [Concomitant]
     Active Substance: MINOCYCLINE HYDROCHLORIDE
     Dosage: 100 MG, TWICE DAILY
     Route: 048
     Dates: end: 20190715
  33. ALBUTEROL SULFATE. [Concomitant]
     Active Substance: ALBUTEROL SULFATE
     Dosage: UNK, AS NEEDED (ONCE DAILY 4 TO 6 HOURS)
  34. LYRICA [Suspect]
     Active Substance: PREGABALIN
     Indication: NEUROPATHY PERIPHERAL
  35. COLCHICINE. [Concomitant]
     Active Substance: COLCHICINE
     Indication: PAIN
     Dosage: 0.6 MG, AS NEEDED (EVERY 2 HOURS)
     Route: 048
     Dates: end: 20190606
  36. LEVOTHYROXINE SODIUM. [Concomitant]
     Active Substance: LEVOTHYROXINE SODIUM
     Dosage: 100 UG, ONCE DAILY (EVERY AM 30 MINUTES BEFORE EATING OR TAKING OTHER MEDICATION)
     Route: 048
  37. TIZANIDINE HCL [Concomitant]
     Active Substance: TIZANIDINE HYDROCHLORIDE
     Indication: RESTLESS LEGS SYNDROME
     Dosage: 4 MG, 1X/DAY [1 PO AT BEDTIME ]
     Route: 048
  38. METHYL B 12 [Concomitant]
     Dosage: 1000 UG, WEEKLY (AT NOON ON MONDAY)
  39. XARELTO [Concomitant]
     Active Substance: RIVAROXABAN
     Dosage: 15 MG, ONCE DIALY (EVERY PM)
     Route: 048
     Dates: end: 20200214

REACTIONS (2)
  - Dementia Alzheimer^s type [Recovered/Resolved]
  - Therapeutic response unexpected [Recovered/Resolved]

NARRATIVE: CASE EVENT DATE: 201711
